FAERS Safety Report 5387500-5 (Version None)
Quarter: 2007Q3

REPORT INFORMATION
  Report Type: 
  Country: None (occurrence: None)
  Receive Date: 20070716
  Receipt Date: 20070706
  Transmission Date: 20080115
  Serious: Yes (Hospitalization)
  Sender: FDA-Public Use
  Company Number: US-JNJFOC-20070701672

PATIENT
  Sex: Female
  Weight: 63.05 kg

DRUGS (16)
  1. REMICADE [Suspect]
     Route: 042
  2. REMICADE [Suspect]
     Route: 042
  3. REMICADE [Suspect]
     Route: 042
  4. REMICADE [Suspect]
     Route: 042
  5. REMICADE [Suspect]
     Route: 042
  6. REMICADE [Suspect]
     Indication: RHEUMATOID ARTHRITIS
     Route: 042
  7. LEFLUNOMIDE [Concomitant]
  8. LYRICA [Concomitant]
  9. AMBIEN [Concomitant]
  10. GINGER [Concomitant]
  11. NITROFURANTOIN [Concomitant]
  12. AMLODIPINE [Concomitant]
  13. AMLODIPINE [Concomitant]
  14. CEXILCO [Concomitant]
  15. ACIPHEX [Concomitant]
  16. MORPHINE SULFATE [Concomitant]

REACTIONS (2)
  - AMNESIA [None]
  - CYSTITIS [None]
